FAERS Safety Report 11124083 (Version 3)
Quarter: 2015Q2

REPORT INFORMATION
  Report Type: Spontaneous
  Country: US (occurrence: None)
  Receive Date: 20150518
  Receipt Date: 20150629
  Transmission Date: 20150821
  Serious: Yes (Death, Life-Threatening)
  Sender: FDA-Public Use
  Company Number: 1713747-2015-999146

PATIENT
  Age: 50 Year
  Sex: Female
  Weight: 57.15 kg

DRUGS (10)
  1. 2008K [Concomitant]
  2. GRANUFLO [Concomitant]
     Active Substance: ACETIC ACID\SODIUM ACETATE
  3. FMC BLOODLINES [Concomitant]
     Active Substance: DEVICE
  4. SALINE [Concomitant]
     Active Substance: SODIUM CHLORIDE
  5. 0.9% SODIUM CHLORIDE INJECTION, USP [Suspect]
     Active Substance: SODIUM CHLORIDE
     Indication: CHRONIC KIDNEY DISEASE
     Dosage: HEMODIALYSIS
     Dates: start: 20110506
  6. POTASSIUM BATH [Concomitant]
  7. NATURALYTE [Concomitant]
     Active Substance: ACETIC ACID\SODIUM ACETATE
  8. OXYGEN. [Concomitant]
     Active Substance: OXYGEN
  9. DIALYZER [Concomitant]
  10. DEPAKOTE [Concomitant]
     Active Substance: DIVALPROEX SODIUM

REACTIONS (12)
  - Syncope [None]
  - Blood calcium decreased [None]
  - Cardiac arrest [None]
  - Pulseless electrical activity [None]
  - Anaphylactic reaction [None]
  - Pain [None]
  - Refusal of treatment by patient [None]
  - Vascular access complication [None]
  - Haemoglobin decreased [None]
  - Blood potassium increased [None]
  - Abdominal pain upper [None]
  - Pneumonia aspiration [None]

NARRATIVE: CASE EVENT DATE: 20110506
